FAERS Safety Report 10196814 (Version 1)
Quarter: 2014Q2

REPORT INFORMATION
  Report Type: Spontaneous
  Country: GB (occurrence: None)
  Receive Date: 20140522
  Receipt Date: 20140522
  Transmission Date: 20141212
  Serious: Yes (Hospitalization)
  Sender: FDA-Public Use
  Company Number: 2014135823

PATIENT
  Age: 35 Year
  Sex: Female
  Weight: 68 kg

DRUGS (10)
  1. FRAGMIN [Suspect]
     Dosage: APPROPRIATE DOSE FOR HEIGHT AND WEIGHT
  2. KADCYLA [Suspect]
     Indication: BREAST CANCER METASTATIC
     Route: 042
  3. HERCEPTIN (TRASTUZUMAB) [Concomitant]
  4. ACETAZOLAMIDE (ACETAZOLAMIDE) [Concomitant]
  5. DICLOFENAC (DICLOFENAC) [Concomitant]
  6. PARACETAMOL (PARACETAMOL) [Concomitant]
  7. DIHYDROCODEINE (DIHYDROCODEINE) [Concomitant]
  8. PREGABALIN (PREGABALIN) [Concomitant]
  9. FLUOXETINE (FLUOXETINE) [Concomitant]
  10. PROPRANOLOL (PROPRANOLOL) [Concomitant]

REACTIONS (4)
  - Drug interaction [None]
  - Contusion [None]
  - Activated partial thromboplastin time prolonged [None]
  - Anti factor X antibody positive [None]
